FAERS Safety Report 6092094-5 (Version None)
Quarter: 2009Q1

REPORT INFORMATION
  Report Type: 
  Country: None (occurrence: None)
  Receive Date: 20090218
  Receipt Date: 20090209
  Transmission Date: 20090719
  Serious: Yes (Other)
  Sender: FDA-Public Use
  Company Number: AECAN200900027

PATIENT
  Age: 26 Month
  Sex: Female

DRUGS (2)
  1. GAMUNEX [Suspect]
     Indication: KAWASAKI'S DISEASE
     Dosage: ; IV
     Route: 042
     Dates: start: 20090131, end: 20090203
  2. ASPIRIN [Suspect]
     Indication: DRUG USE FOR UNKNOWN INDICATION
     Dates: end: 20090201

REACTIONS (1)
  - SERUM SICKNESS [None]
